FAERS Safety Report 15276736 (Version 1)
Quarter: 2018Q3

REPORT INFORMATION
  Report Type: Spontaneous
  Country: US (occurrence: US)
  Receive Date: 20180814
  Receipt Date: 20180814
  Transmission Date: 20181010
  Serious: Yes (Other)
  Sender: FDA-Public Use
  Company Number: US-NOVOPROD-615445

PATIENT
  Age: 69 Year
  Sex: Female

DRUGS (1)
  1. NOVOLOG [Suspect]
     Active Substance: INSULIN ASPART
     Indication: TYPE 2 DIABETES MELLITUS
     Dosage: UNK, TID SLIDING SCALE (60?90 UNITS)
     Route: 058
     Dates: start: 2006

REACTIONS (8)
  - Blindness [Not Recovered/Not Resolved]
  - Eye pain [Unknown]
  - Eye haemorrhage [Not Recovered/Not Resolved]
  - Eye operation [Unknown]
  - Rhinalgia [Unknown]
  - Eyelid ptosis [Not Recovered/Not Resolved]
  - Diabetes mellitus inadequate control [Not Recovered/Not Resolved]
  - Nephropathy [Not Recovered/Not Resolved]

NARRATIVE: CASE EVENT DATE: 2006
